FAERS Safety Report 9234538 (Version 1)
Quarter: 2013Q2

REPORT INFORMATION
  Report Type: Spontaneous
  Country: SK (occurrence: SK)
  Receive Date: 20130416
  Receipt Date: 20130416
  Transmission Date: 20140414
  Serious: Yes (Death, Hospitalization)
  Sender: FDA-Public Use
  Company Number: SK-GLAXOSMITHKLINE-B0882939A

PATIENT
  Age: 71 Year
  Sex: Female

DRUGS (3)
  1. CLINDAMYCIN [Suspect]
     Indication: PNEUMONIA
     Dosage: 600MG THREE TIMES PER DAY
     Route: 042
     Dates: start: 20130214, end: 20130301
  2. FORTUM [Suspect]
     Indication: PNEUMONIA
     Dosage: 2G THREE TIMES PER DAY
     Route: 042
     Dates: start: 20130214, end: 20130301
  3. FLUCONAZOLE [Suspect]
     Indication: PNEUMONIA
     Dosage: 200MG PER DAY
     Route: 042
     Dates: start: 20130214, end: 20130301

REACTIONS (2)
  - Diarrhoea [Unknown]
  - Cardiac failure [Fatal]
